FAERS Safety Report 11473826 (Version 1)
Quarter: 2015Q3

REPORT INFORMATION
  Report Type: Spontaneous
  Country: US (occurrence: US)
  Receive Date: 20150908
  Receipt Date: 20150908
  Transmission Date: 20151125
  Serious: No
  Sender: FDA-Public Use
  Company Number: US-JAZZ-2013-US-000488

PATIENT
  Sex: Male

DRUGS (11)
  1. XYREM [Suspect]
     Active Substance: SODIUM OXYBATE
     Indication: CATAPLEXY
     Dosage: 1.5 G, BID
     Route: 048
     Dates: start: 20081126
  2. NUVIGIL [Concomitant]
     Active Substance: ARMODAFINIL
     Indication: CATAPLEXY
     Dosage: UNSPECIFIED DOSE
     Route: 048
  3. PROTRIPTYLINE [Concomitant]
     Active Substance: PROTRIPTYLINE
     Indication: CATAPLEXY
     Dosage: UNSPECIFIED DOSE
     Route: 048
  4. PRILOSEC [Concomitant]
     Active Substance: OMEPRAZOLE MAGNESIUM
     Indication: GASTROOESOPHAGEAL REFLUX DISEASE
     Dosage: UNSPECIFIED DOSE
     Route: 048
  5. XYREM [Suspect]
     Active Substance: SODIUM OXYBATE
     Dosage: UNKNOWN DOSE
     Route: 048
     Dates: start: 2013, end: 2013
  6. ASPIRIN. [Concomitant]
     Active Substance: ASPIRIN
     Indication: PRODUCT USED FOR UNKNOWN INDICATION
     Dosage: UNSPECIFIED DOSE
     Route: 048
  7. XYREM [Suspect]
     Active Substance: SODIUM OXYBATE
     Indication: NARCOLEPSY
     Dosage: 3.0 G, BID
     Route: 048
     Dates: start: 2008, end: 2008
  8. VENLAFAXINE [Concomitant]
     Active Substance: VENLAFAXINE HYDROCHLORIDE
     Indication: HEADACHE
     Dosage: UNSPECIFIED DOSE
     Route: 048
  9. XYREM [Suspect]
     Active Substance: SODIUM OXYBATE
     Dosage: 6.0 G, BID
     Route: 048
     Dates: start: 200901, end: 2009
  10. NUVIGIL [Concomitant]
     Active Substance: ARMODAFINIL
     Indication: NARCOLEPSY
  11. CELEBREX [Concomitant]
     Active Substance: CELECOXIB
     Indication: ARTHRALGIA
     Dosage: UNSPECIFIED DOSE
     Route: 048

REACTIONS (5)
  - Poor quality sleep [Not Recovered/Not Resolved]
  - Insomnia [Recovered/Resolved]
  - Hypersomnia [Not Recovered/Not Resolved]
  - Abnormal dreams [Not Recovered/Not Resolved]
  - Expired product administered [Unknown]

NARRATIVE: CASE EVENT DATE: 2013
